FAERS Safety Report 8875955 (Version 4)
Quarter: 2012Q4

REPORT INFORMATION
  Report Type: Report from Study
  Country: TH (occurrence: TH)
  Receive Date: 20121023
  Receipt Date: 20121227
  Transmission Date: 20130627
  Serious: Yes (Hospitalization)
  Sender: FDA-Public Use
  Company Number: TH-GLAXOSMITHKLINE-R0023047A

PATIENT
  Age: 17 Year
  Sex: Female
  Weight: 58.1 kg

DRUGS (4)
  1. BLINDED VACCINE [Suspect]
     Route: 030
     Dates: start: 20120220, end: 20120220
  2. LAMIVUDINE-HIV [Concomitant]
     Indication: HIV INFECTION
     Dosage: 300MG per day
     Route: 048
     Dates: start: 20120701
  3. EFAVIRENZ [Concomitant]
     Indication: HIV INFECTION
     Dosage: 600MG per day
     Route: 048
     Dates: start: 20080122
  4. ZIDOVUDINE [Concomitant]
     Indication: HIV INFECTION
     Dosage: 600MG per day
     Route: 048
     Dates: start: 20080122

REACTIONS (1)
  - Acute tonsillitis [Recovered/Resolved]
